FAERS Safety Report 18707923 (Version 2)
Quarter: 2021Q1

REPORT INFORMATION
  Report Type: Report from Study
  Country: US (occurrence: US)
  Receive Date: 20210106
  Receipt Date: 20210120
  Transmission Date: 20210419
  Serious: Yes (Hospitalization, Other)
  Sender: FDA-Public Use
  Company Number: US-JNJFOC-20201243958

PATIENT
  Sex: Female
  Weight: 52.66 kg

DRUGS (4)
  1. AMBRISENTAN [Concomitant]
     Active Substance: AMBRISENTAN
  2. EPOPROSTENOL SODIUM. [Suspect]
     Active Substance: EPOPROSTENOL SODIUM
     Indication: PULMONARY HYPERTENSION
     Route: 042
  3. EPOPROSTENOL SODIUM. [Suspect]
     Active Substance: EPOPROSTENOL SODIUM
     Route: 042
  4. TADALAFIL. [Concomitant]
     Active Substance: TADALAFIL

REACTIONS (11)
  - Headache [Unknown]
  - Pain in jaw [Unknown]
  - Decreased appetite [Unknown]
  - Diarrhoea [Recovering/Resolving]
  - Hospitalisation [Unknown]
  - Weight decreased [Unknown]
  - Dyspnoea exertional [Not Recovered/Not Resolved]
  - Contusion [Unknown]
  - Ascites [Recovering/Resolving]
  - Clostridium difficile infection [Unknown]
  - Pain in extremity [Unknown]
